FAERS Safety Report 18729492 (Version 1)
Quarter: 2021Q1

REPORT INFORMATION
  Report Type: Spontaneous
  Country: US (occurrence: US)
  Receive Date: 20210111
  Receipt Date: 20210111
  Transmission Date: 20210419
  Serious: No
  Sender: FDA-Public Use
  Company Number: None

PATIENT
  Age: 71 Year
  Sex: Male
  Weight: 57 kg

DRUGS (2)
  1. HEPARIN (HEPARIN NA 1000UNT/ML INJ) [Suspect]
     Active Substance: HEPARIN SODIUM
     Indication: MYOCARDIAL INFARCTION
     Dosage: ?          OTHER DOSE:940 UNITS;OTHER FREQUENCY:PER HOUR;?
     Route: 042
     Dates: start: 20191113, end: 20201213
  2. CLOPIDOGREL (CLOPIDOGREL BISULFATE 75MG TAB) [Suspect]
     Active Substance: CLOPIDOGREL BISULFATE
     Route: 048
     Dates: start: 20200413, end: 20201223

REACTIONS (7)
  - Dyspnoea [None]
  - Pneumonia [None]
  - Haemoptysis [None]
  - Tachypnoea [None]
  - Haemorrhage [None]
  - Chronic obstructive pulmonary disease [None]
  - Tachycardia [None]

NARRATIVE: CASE EVENT DATE: 20201213
